FAERS Safety Report 11321848 (Version 1)
Quarter: 2015Q3

REPORT INFORMATION
  Report Type: Spontaneous
  Country: US (occurrence: US)
  Receive Date: 20150729
  Receipt Date: 20150729
  Transmission Date: 20151125
  Serious: Yes (Hospitalization)
  Sender: FDA-Public Use
  Company Number: US-BAYER-2015-387134

PATIENT
  Age: 48 Year
  Sex: Female

DRUGS (1)
  1. BETASERON [Suspect]
     Active Substance: INTERFERON BETA-1B
     Indication: MULTIPLE SCLEROSIS
     Dosage: 0.25, QOD
     Dates: start: 20140507

REACTIONS (6)
  - Abdominal hernia [None]
  - Injection site erythema [None]
  - Injection site urticaria [None]
  - Injection site bruising [None]
  - Injection site irritation [None]
  - Injection site pain [None]

NARRATIVE: CASE EVENT DATE: 201501
